FAERS Safety Report 6406378-1 (Version None)
Quarter: 2009Q4

REPORT INFORMATION
  Report Type: 
  Country: None (occurrence: None)
  Receive Date: 20091019
  Receipt Date: 20091005
  Transmission Date: 20100525
  Serious: Yes (Hospitalization)
  Sender: FDA-Public Use
  Company Number: NO-MYLANLABS-2009S1017378

PATIENT
  Age: 40 Day

DRUGS (1)
  1. TOPIRAMATE [Suspect]
     Dosage: 50MG X 2
     Route: 063

REACTIONS (2)
  - DIARRHOEA [None]
  - DRUG EXPOSURE VIA BREAST MILK [None]
